FAERS Safety Report 18429331 (Version 1)
Quarter: 2020Q4

REPORT INFORMATION
  Report Type: Spontaneous
  Country: US (occurrence: US)
  Receive Date: 20201027
  Receipt Date: 20201027
  Transmission Date: 20210114
  Serious: Yes (Other)
  Sender: FDA-Public Use
  Company Number: US-AMGEN-USASP2020169444

PATIENT

DRUGS (1)
  1. PROLIA [Suspect]
     Active Substance: DENOSUMAB
     Indication: OSTEOPOROSIS
     Dosage: UNK
     Route: 065

REACTIONS (5)
  - Low density lipoprotein increased [Unknown]
  - Deafness [Unknown]
  - Dry eye [Not Recovered/Not Resolved]
  - Tooth disorder [Unknown]
  - Alopecia [Not Recovered/Not Resolved]
